FAERS Safety Report 10028308 (Version 5)
Quarter: 2014Q4

REPORT INFORMATION
  Report Type: Spontaneous
  Country: US (occurrence: None)
  Receive Date: 20140307
  Receipt Date: 20141229
  Transmission Date: 20150528
  Serious: Yes (Other)
  Sender: FDA-Public Use
  Company Number: 2014US0100

PATIENT
  Age: 15 Year
  Sex: Female
  Weight: 43.9 kg

DRUGS (8)
  1. HYDROCORTISON CREAM (HYDROCORTISONE) [Concomitant]
  2. NEXPLANON (ETONOGRESTREL) [Concomitant]
  3. ORFADIN [Suspect]
     Active Substance: NITISINONE
     Indication: TYROSINAEMIA
     Dates: start: 20121220
  4. DIPHENHYDRAMINE (DIPHENHYDRAMINE) [Concomitant]
     Active Substance: DIPHENHYDRAMINE
  5. BACTRIM (BACTRIM) (SULFAMETHOXAZOLE, TRIMETROPRIM) [Concomitant]
  6. ORFADIN [Suspect]
     Active Substance: NITISINONE
     Indication: CHRONIC KIDNEY DISEASE
     Dates: start: 20121220
  7. TACROLIMUS (TACROLIMUS) [Concomitant]
     Active Substance: TACROLIMUS
  8. BENADRYL (BENADRYL) (DIPHENHYDRAMINE , PARACETAMOL, PHENYLPROPANOLAMINE HYDROCHLORIDE) [Concomitant]

REACTIONS (4)
  - Nervous system disorder [None]
  - Educational problem [None]
  - Syncope [None]
  - Disturbance in attention [None]

NARRATIVE: CASE EVENT DATE: 2012
